FAERS Safety Report 8528483-6 (Version None)
Quarter: 2012Q3

REPORT INFORMATION
  Report Type: 
  Country: None (occurrence: None)
  Receive Date: 20120723
  Receipt Date: 20120710
  Transmission Date: 20120928
  Serious: No
  Sender: FDA-Public Use
  Company Number: US-009507513-1207USA003773

PATIENT

DRUGS (1)
  1. ZIOPTAN [Suspect]
     Route: 047

REACTIONS (3)
  - VISION BLURRED [None]
  - BURNING SENSATION [None]
  - PAIN [None]
